FAERS Safety Report 10682299 (Version 1)
Quarter: 2014Q4

REPORT INFORMATION
  Report Type: Spontaneous
  Country: ES (occurrence: None)
  Receive Date: 20141224
  Receipt Date: 20141224
  Transmission Date: 20150529
  Serious: Yes (Hospitalization)
  Sender: FDA-Public Use
  Company Number: 20140228

PATIENT
  Age: 43 Year
  Sex: Female

DRUGS (5)
  1. METOJECT [Suspect]
     Active Substance: METHOTREXATE SODIUM
     Indication: RHEUMATOID ARTHRITIS
     Route: 030
     Dates: start: 201311, end: 20140115
  2. ENBREL [Suspect]
     Active Substance: ETANERCEPT
     Indication: RHEUMATOID ARTHRITIS
     Dates: start: 20131010, end: 20140114
  3. ADIRO (ACETYLSALICYLIC ACID) [Concomitant]
  4. DRETINE (ETHINYLESTRADIOL, DROSPERINONE) [Concomitant]
  5. OMEPRAZOLE (OMEPRAZOLE) [Concomitant]
     Active Substance: OMEPRAZOLE

REACTIONS (33)
  - Disease recurrence [None]
  - Vomiting [None]
  - Immune system disorder [None]
  - Nausea [None]
  - Activities of daily living impaired [None]
  - Uterine leiomyoma [None]
  - Injection site erythema [None]
  - Hyperkeratosis [None]
  - Influenza [None]
  - Mobility decreased [None]
  - Volvulus [None]
  - Injection site pruritus [None]
  - Therapy cessation [None]
  - Blood cholesterol increased [None]
  - Injection site mass [None]
  - Injection site discolouration [None]
  - Chills [None]
  - Pain in extremity [None]
  - Dysuria [None]
  - Diarrhoea [None]
  - Inappropriate schedule of drug administration [None]
  - Impaired healing [None]
  - Fibrosis [None]
  - Fatigue [None]
  - Condition aggravated [None]
  - Rheumatoid arthritis [None]
  - General physical health deterioration [None]
  - Injection site haematoma [None]
  - Weight increased [None]
  - Blood triglycerides increased [None]
  - Pyelonephritis [None]
  - Urinary tract infection [None]
  - Injection site reaction [None]
